FAERS Safety Report 8413199-7 (Version None)
Quarter: 2012Q2

REPORT INFORMATION
  Report Type: 
  Country: None (occurrence: None)
  Receive Date: 20120605
  Receipt Date: 20120529
  Transmission Date: 20120825
  Serious: No
  Sender: FDA-Public Use
  Company Number: US-AMGEN-USASP2012033768

PATIENT
  Age: 27 Year
  Sex: Female

DRUGS (3)
  1. CELEBREX [Concomitant]
     Dosage: UNK MG, UNK
  2. ENBREL [Suspect]
     Indication: ANKYLOSING SPONDYLITIS
     Dosage: 50 MG, QWK
     Dates: start: 20120101
  3. SULFASALAZINE [Concomitant]
     Dosage: UNK MG, UNK

REACTIONS (2)
  - INJECTION SITE RASH [None]
  - INJECTION SITE PRURITUS [None]
